FAERS Safety Report 11845546 (Version 1)
Quarter: 2015Q4

REPORT INFORMATION
  Report Type: Spontaneous
  Country: US (occurrence: US)
  Receive Date: 20151217
  Receipt Date: 20151217
  Transmission Date: 20160305
  Serious: Yes (Other)
  Sender: FDA-Public Use
  Company Number: US-PFIZER INC-2015438833

PATIENT
  Age: 71 Year
  Sex: Female
  Weight: 68 kg

DRUGS (1)
  1. EXEMESTANE. [Suspect]
     Active Substance: EXEMESTANE
     Indication: BREAST CANCER
     Dosage: 25 MG, 1X/DAY
     Route: 048
     Dates: start: 201509

REACTIONS (13)
  - Lacrimation increased [Unknown]
  - Nerve compression [Unknown]
  - Oedema peripheral [Unknown]
  - Myalgia [Unknown]
  - Visual impairment [Unknown]
  - Arthralgia [Unknown]
  - Plantar fasciitis [Unknown]
  - Paraesthesia [Unknown]
  - Hot flush [Unknown]
  - Hyperhidrosis [Unknown]
  - Cataract [Unknown]
  - Cough [Unknown]
  - Fatigue [Unknown]
